FAERS Safety Report 4717803-6 (Version None)
Quarter: 2005Q3

REPORT INFORMATION
  Report Type: 
  Country: None (occurrence: None)
  Receive Date: 20050718
  Receipt Date: 20050718
  Transmission Date: 20060218
  Serious: Yes (Hospitalization, Other)
  Sender: FDA-Public Use
  Company Number: None

PATIENT
  Sex: Female
  Weight: 78 kg

DRUGS (5)
  1. MITOMYCIN [Suspect]
     Indication: ANAL CANCER
     Dosage: SEE IMAGE
     Route: 040
     Dates: start: 20050314, end: 20050314
  2. FLUOROURACIL [Suspect]
     Dosage: SEE IMAGE
     Route: 042
     Dates: start: 20050314, end: 20050318
  3. ASPIRIN [Concomitant]
  4. COUMADIN [Concomitant]
  5. SYNTHROID [Concomitant]

REACTIONS (8)
  - ASTHENIA [None]
  - ATRIAL FIBRILLATION [None]
  - BLOOD PRESSURE DIASTOLIC INCREASED [None]
  - CARDIAC FAILURE CONGESTIVE [None]
  - HAEMATOCHEZIA [None]
  - MALAISE [None]
  - PLEURAL EFFUSION [None]
  - SINUS TACHYCARDIA [None]
